FAERS Safety Report 7682361-3 (Version None)
Quarter: 2011Q3

REPORT INFORMATION
  Report Type: 
  Country: None (occurrence: None)
  Receive Date: 20110815
  Receipt Date: 20110805
  Transmission Date: 20111222
  Serious: Yes (Death)
  Sender: FDA-Public Use
  Company Number: JP-CELGENEUS-087-50794-11043585

PATIENT
  Sex: Male

DRUGS (15)
  1. LEVOFLOXACIN [Concomitant]
     Dosage: 500 MILLIGRAM
     Route: 065
     Dates: start: 20110314, end: 20110424
  2. MUCOSTA [Concomitant]
     Dosage: 200 MILLIGRAM
     Route: 048
     Dates: start: 20110420, end: 20110424
  3. VIDAZA [Suspect]
     Dosage: 75 MILLIGRAM/SQ. METER
     Route: 041
     Dates: start: 20110418, end: 20110422
  4. CEFAZOLIN SODIUM [Concomitant]
     Indication: DIARRHOEA
     Dosage: 3 DOSAGE FORMS
     Route: 048
     Dates: start: 20110407, end: 20110409
  5. ITORAT [Concomitant]
     Dosage: 100 MILLIGRAM
     Route: 048
     Dates: start: 20110331, end: 20110424
  6. MUCODYNE [Concomitant]
     Dosage: 1500 MILLIGRAM
     Route: 048
     Dates: end: 20110424
  7. HOKUNALIN [Concomitant]
     Dosage: 2 MILLIGRAM
     Route: 065
     Dates: end: 20110424
  8. VIDAZA [Suspect]
     Indication: MYELODYSPLASTIC SYNDROME
     Dosage: 75 MILLIGRAM/SQ. METER
     Route: 041
     Dates: start: 20110314, end: 20110320
  9. CELECOXIB [Concomitant]
     Dosage: 200 MILLIGRAM
     Route: 048
     Dates: start: 20110420, end: 20110424
  10. ALLOPURINOL [Concomitant]
     Dosage: 100 MILLIGRAM
     Route: 048
     Dates: end: 20110424
  11. ALDACTONE [Concomitant]
     Dosage: 50 MILLIGRAM
     Route: 048
     Dates: start: 20110323, end: 20110424
  12. BLADDERON [Concomitant]
     Dosage: 600 MILLIGRAM
     Route: 048
     Dates: end: 20110424
  13. LASIX [Concomitant]
     Dosage: 20 MILLIGRAM
     Route: 048
     Dates: end: 20110424
  14. MAGNESIUM SULFATE [Concomitant]
     Dosage: 2000 MILLIGRAM
     Route: 048
     Dates: end: 20110424
  15. KALIMATE [Concomitant]
     Dosage: 10 GRAM
     Route: 048
     Dates: end: 20110424

REACTIONS (2)
  - CARDIO-RESPIRATORY ARREST [None]
  - BLOOD UREA INCREASED [None]
